FAERS Safety Report 10040217 (Version 3)
Quarter: 2014Q2

REPORT INFORMATION
  Report Type: Spontaneous
  Country: US (occurrence: US)
  Receive Date: 20140327
  Receipt Date: 20140610
  Transmission Date: 20141212
  Serious: No
  Sender: FDA-Public Use
  Company Number: US-009507513-1403USA005384

PATIENT
  Age: 23 Year
  Sex: Female
  Weight: 97.52 kg

DRUGS (1)
  1. IMPLANON [Suspect]
     Indication: CONTRACEPTION
     Dosage: UNK
     Route: 059
     Dates: start: 201208

REACTIONS (3)
  - Implant site scar [Unknown]
  - Medical device complication [Unknown]
  - Drug dose omission [Unknown]
